FAERS Safety Report 9598744 (Version 1)
Quarter: 2013Q4

REPORT INFORMATION
  Report Type: Spontaneous
  Country: US (occurrence: US)
  Receive Date: 20131004
  Receipt Date: 20131004
  Transmission Date: 20140711
  Serious: No
  Sender: FDA-Public Use
  Company Number: US-AMGEN-USASP2013025371

PATIENT
  Age: 51 Year
  Sex: Female
  Weight: 65.76 kg

DRUGS (9)
  1. ENBREL [Suspect]
     Indication: PRODUCT USED FOR UNKNOWN INDICATION
     Dosage: 50 MG, QWK
     Route: 058
  2. TOBRADEX [Concomitant]
     Dosage: UNK
     Route: 047
  3. BIOTIN [Concomitant]
     Dosage: 5000 UNK, UNK
  4. MULTIVITAMINS, PLAIN [Concomitant]
     Dosage: UNK
  5. CALCIUM 500+D [Concomitant]
     Dosage: UNK
  6. VITAMIN D                          /00107901/ [Concomitant]
     Dosage: 400 UNIT, UNK
  7. MAGNESIUM [Concomitant]
     Dosage: 300 MG, UNK
  8. MORTIN [Concomitant]
     Dosage: 200 MG, UNK
  9. ALEVE [Concomitant]
     Dosage: 220 MG, UNK

REACTIONS (8)
  - Pain in extremity [Unknown]
  - Oedema peripheral [Unknown]
  - Joint swelling [Unknown]
  - Arthralgia [Unknown]
  - Headache [Unknown]
  - Eye infection [Unknown]
  - Injection site bruising [Unknown]
  - Injection site pain [Unknown]
